FAERS Safety Report 24325772 (Version 2)
Quarter: 2024Q3

REPORT INFORMATION
  Report Type: Spontaneous
  Country: CA (occurrence: CA)
  Receive Date: 20240917
  Receipt Date: 20240925
  Transmission Date: 20241017
  Serious: Yes (Other)
  Sender: ORGANON
  Company Number: CA-ORGANON-O2409CAN000940

PATIENT
  Age: 68 Year
  Sex: Male

DRUGS (2)
  1. MOMETASONE FUROATE [Suspect]
     Active Substance: MOMETASONE FUROATE
     Indication: Rash
  2. MOMETASONE FUROATE [Suspect]
     Active Substance: MOMETASONE FUROATE
     Indication: Rash macular

REACTIONS (8)
  - Angina pectoris [Unknown]
  - Headache [Unknown]
  - Erythema [Unknown]
  - Insomnia [Unknown]
  - Ocular hyperaemia [Unknown]
  - Lacrimation increased [Unknown]
  - Burning sensation [Unknown]
  - Treatment noncompliance [Unknown]
